FAERS Safety Report 7918610-3 (Version None)
Quarter: 2011Q4

REPORT INFORMATION
  Report Type: 
  Country: None (occurrence: None)
  Receive Date: 20111116
  Receipt Date: 20111108
  Transmission Date: 20120403
  Serious: Yes (Hospitalization)
  Sender: FDA-Public Use
  Company Number: JP-PFIZER INC-2010121502

PATIENT
  Age: 86 Year
  Sex: Male
  Weight: 69 kg

DRUGS (8)
  1. URINORM [Concomitant]
     Dosage: UNK
  2. LENDORMIN [Concomitant]
     Dosage: UNK
  3. GASTROM [Concomitant]
     Dosage: UNK
  4. CELECOXIB [Suspect]
     Indication: OSTEOARTHRITIS
     Dosage: 100 MG, 2X/DAY
     Route: 048
     Dates: start: 20080304
  5. LANSOPRAZOLE [Concomitant]
     Dosage: UNK
  6. CEROCRAL [Concomitant]
     Dosage: UNK
  7. MERISLON [Concomitant]
     Dosage: UNK
  8. MAGNESIUM OXIDE [Concomitant]
     Dosage: UNK

REACTIONS (1)
  - SUPRAVENTRICULAR EXTRASYSTOLES [None]
